FAERS Safety Report 19417321 (Version 1)
Quarter: 2021Q2

REPORT INFORMATION
  Report Type: Spontaneous
  Country: FR (occurrence: FR)
  Receive Date: 20210614
  Receipt Date: 20210614
  Transmission Date: 20210717
  Serious: Yes (Other)
  Sender: FDA-Public Use
  Company Number: FR-BAXTER-2021BAX015156

PATIENT
  Age: 67 Year
  Sex: Male
  Weight: 80 kg

DRUGS (9)
  1. PROPOFOL PANPHARMA 10 MG/ML EMULSION INJECTABLE [Suspect]
     Active Substance: PROPOFOL
     Indication: SEDATION
     Dosage: TIME 1ST ADMINISTRATION: D16
     Route: 042
     Dates: start: 20210414, end: 20210511
  2. URAPIDIL [Suspect]
     Active Substance: URAPIDIL
     Indication: HYPERTENSION
     Dosage: 232 MG, 13 MG/HOUR TIME 1ST ADMINISTRATION: D4
     Route: 042
     Dates: start: 20210426, end: 20210430
  3. AMLODIPINE [Suspect]
     Active Substance: AMLODIPINE BESYLATE
     Indication: HYPERTENSION
     Route: 048
     Dates: start: 20210510, end: 20210511
  4. LOVENOX [Suspect]
     Active Substance: ENOXAPARIN SODIUM
     Indication: THROMBOSIS PROPHYLAXIS
     Dosage: 0.8 ML 2 TIMES PER DAY
     Route: 058
     Dates: start: 20210414
  5. MIDAZOLAM BAXTER 5 MG/ML, SOLUTION INJECTABLE/POUR PERFUSION [Suspect]
     Active Substance: MIDAZOLAM
     Indication: SEDATION
     Dosage: TIME 1ST ADMINISTRATION: D10
     Route: 042
     Dates: start: 20210419, end: 20210509
  6. TAZOCILLINE [Suspect]
     Active Substance: PIPERACILLIN SODIUM\TAZOBACTAM SODIUM
     Indication: INFECTION
     Route: 042
     Dates: start: 20210428, end: 20210429
  7. NICARDIPINE HYDROCHLORIDE. [Suspect]
     Active Substance: NICARDIPINE HYDROCHLORIDE
     Indication: HYPERTENSION
     Dosage: 2 MG/HR TIME 1ST ADMINISTRATION: D11
     Route: 042
     Dates: start: 20210418, end: 20210418
  8. FUROSEMIDE. [Suspect]
     Active Substance: FUROSEMIDE
     Indication: HYPERTENSION
     Route: 042
     Dates: start: 20210426, end: 20210430
  9. SUFENTANIL [Suspect]
     Active Substance: SUFENTANIL
     Indication: SEDATION
     Dosage: 10 UG/HOUR TIME 1ST ADMINISTRATION: D16
     Route: 042
     Dates: start: 20210414, end: 20210524

REACTIONS (1)
  - Drug reaction with eosinophilia and systemic symptoms [Recovering/Resolving]

NARRATIVE: CASE EVENT DATE: 20210429
